FAERS Safety Report 5547554-X (Version None)
Quarter: 2007Q4

REPORT INFORMATION
  Report Type: 
  Country: None (occurrence: None)
  Receive Date: 20071211
  Receipt Date: 20070226
  Transmission Date: 20080405
  Serious: No
  Sender: FDA-Public Use
  Company Number: US-AMGEN-KDL207021

PATIENT
  Sex: Female
  Weight: 80.8 kg

DRUGS (12)
  1. ENBREL [Suspect]
     Indication: RHEUMATOID ARTHRITIS
     Route: 058
     Dates: start: 20040501
  2. METHOTREXATE [Concomitant]
     Route: 048
     Dates: start: 20030101
  3. QUININE SULFATE [Concomitant]
  4. SYNTHROID [Concomitant]
  5. CLONAZEPAM [Concomitant]
  6. MAXAIR [Concomitant]
  7. PRILOSEC [Concomitant]
  8. ASPIRIN [Concomitant]
  9. FLUTICASONE PROPIONATE [Concomitant]
  10. FOLIC ACID [Concomitant]
  11. NAPROXEN [Concomitant]
  12. PREDNISONE [Concomitant]

REACTIONS (3)
  - DRY EYE [None]
  - MACULOPATHY [None]
  - VISION BLURRED [None]
